FAERS Safety Report 4984360-9 (Version None)
Quarter: 2006Q2

REPORT INFORMATION
  Report Type: 
  Country: None (occurrence: None)
  Receive Date: 20060427
  Receipt Date: 20060328
  Transmission Date: 20061013
  Serious: No
  Sender: FDA-Public Use
  Company Number: US-BRISTOL-MYERS SQUIBB COMPANY-13330733

PATIENT
  Sex: Male

DRUGS (1)
  1. CAPTOPRIL [Suspect]

REACTIONS (1)
  - COUGH [None]
